FAERS Safety Report 20473827 (Version 1)
Quarter: 2022Q1

REPORT INFORMATION
  Report Type: Spontaneous
  Country: US (occurrence: None)
  Receive Date: 20220214
  Receipt Date: 20220214
  Transmission Date: 20220424
  Serious: Yes (Hospitalization, Other)
  Sender: FDA-Public Use
  Company Number: None

PATIENT
  Age: 73 Year
  Sex: Male

DRUGS (1)
  1. IOHEXOL [Suspect]
     Active Substance: IOHEXOL
     Indication: Coronary arterial stent insertion
     Dates: start: 20211118, end: 20211118

REACTIONS (4)
  - Acute kidney injury [None]
  - Nephropathy toxic [None]
  - Dialysis [None]
  - Renal tubular necrosis [None]

NARRATIVE: CASE EVENT DATE: 20211118
